FAERS Safety Report 4384501-0 (Version None)
Quarter: 2004Q2

REPORT INFORMATION
  Report Type: 
  Country: None (occurrence: None)
  Receive Date: 20040624
  Receipt Date: 20040618
  Transmission Date: 20050107
  Serious: Yes (Hospitalization)
  Sender: FDA-Public Use
  Company Number: GR-MERCK-0406GRC00011

PATIENT
  Age: 61 Year
  Sex: Male

DRUGS (2)
  1. ANTIMICROBIAL (UNSPECIFIED) [Concomitant]
     Indication: RESPIRATORY TRACT INFECTION
     Route: 048
     Dates: start: 20040419, end: 20040420
  2. VIOXX [Suspect]
     Indication: ARTHRALGIA
     Route: 048
     Dates: start: 20040413, end: 20040415

REACTIONS (2)
  - PURPURA [None]
  - RENAL IMPAIRMENT [None]
